FAERS Safety Report 20760609 (Version 2)
Quarter: 2022Q2

REPORT INFORMATION
  Report Type: Spontaneous
  Country: BE (occurrence: BE)
  Receive Date: 20220428
  Receipt Date: 20220507
  Transmission Date: 20220720
  Serious: No
  Sender: FDA-Public Use
  Company Number: BE-SA-SAC20220426000024

PATIENT

DRUGS (1)
  1. CABLIVI [Suspect]
     Active Substance: CAPLACIZUMAB-YHDP

REACTIONS (1)
  - Catheter site haemorrhage [Unknown]

NARRATIVE: CASE EVENT DATE: 20200125
